FAERS Safety Report 4414158-1 (Version None)
Quarter: 2004Q3

REPORT INFORMATION
  Report Type: 
  Country: None (occurrence: None)
  Receive Date: 20040803
  Receipt Date: 20040729
  Transmission Date: 20050211
  Serious: Yes (Hospitalization, Other)
  Sender: FDA-Public Use
  Company Number: PHRM2004FR02461

PATIENT
  Age: 71 Year
  Sex: Female

DRUGS (2)
  1. LAMISIL [Suspect]
     Indication: NAIL TINEA
     Dosage: 250 MG, QD
     Route: 048
     Dates: start: 20040616, end: 20040626
  2. NISIS [Suspect]
     Dosage: UNK, UNK
     Route: 048
     Dates: end: 20040704

REACTIONS (10)
  - C-REACTIVE PROTEIN INCREASED [None]
  - DEHYDRATION [None]
  - EOSINOPHILIA [None]
  - ERYTHEMA MULTIFORME [None]
  - HYPOTENSION [None]
  - PYREXIA [None]
  - RASH MACULAR [None]
  - RASH PAPULAR [None]
  - RASH PRURITIC [None]
  - RENAL FAILURE ACUTE [None]
